FAERS Safety Report 8136701-1 (Version None)
Quarter: 2012Q1

REPORT INFORMATION
  Report Type: 
  Country: None (occurrence: None)
  Receive Date: 20120214
  Receipt Date: 20120130
  Transmission Date: 20120608
  Serious: Yes (Hospitalization, Other)
  Sender: FDA-Public Use
  Company Number: CH-WATSON-2012-02196

PATIENT
  Age: 41 Year
  Sex: Female

DRUGS (1)
  1. METHYLPHENIDATE HCL [Suspect]
     Indication: PRODUCT USED FOR UNKNOWN INDICATION
     Dosage: UNK
     Route: 042

REACTIONS (4)
  - PYREXIA [None]
  - GROIN ABSCESS [None]
  - INTENTIONAL DRUG MISUSE [None]
  - INJECTION SITE ERYTHEMA [None]
